FAERS Safety Report 8853990 (Version 1)
Quarter: 2012Q4

REPORT INFORMATION
  Report Type: Report from Study
  Country: CA (occurrence: CA)
  Receive Date: 20121022
  Receipt Date: 20121022
  Transmission Date: 20130627
  Serious: Yes (Other)
  Sender: FDA-Public Use
  Company Number: PHHY2012CA093953

PATIENT
  Age: 71 Year

DRUGS (3)
  1. ACLASTA/ZOLEDRONATE [Suspect]
     Dosage: 5 mg/100ml
     Route: 042
     Dates: start: 20091027
  2. VITAMIN D [Concomitant]
     Dosage: 400 mg, BID
     Dates: start: 2003
  3. CALCIUM [Concomitant]
     Dosage: 500 mg, BID

REACTIONS (2)
  - Fall [Unknown]
  - Facial bones fracture [Unknown]
